FAERS Safety Report 9610182 (Version 1)
Quarter: 2013Q4

REPORT INFORMATION
  Report Type: Spontaneous
  Country: US (occurrence: US)
  Receive Date: 20131009
  Receipt Date: 20131009
  Transmission Date: 20140711
  Serious: No
  Sender: FDA-Public Use
  Company Number: US-PURDUE-USA-2012-0096815

PATIENT
  Sex: Female

DRUGS (3)
  1. BUTRANS [Suspect]
     Indication: BACK PAIN
     Dosage: 5 MCG, Q1H
     Route: 062
     Dates: start: 20121107
  2. BUTRANS [Suspect]
     Indication: ARTHRALGIA
  3. XELODA [Concomitant]
     Indication: CHEMOTHERAPY
     Dosage: UNK
     Route: 065
     Dates: start: 20121101

REACTIONS (9)
  - Hypopnoea [Unknown]
  - Ear discomfort [Unknown]
  - Ear swelling [Unknown]
  - Oedema peripheral [Unknown]
  - Rash [Unknown]
  - Urticaria [Unknown]
  - Depression [Unknown]
  - Anxiety [Unknown]
  - Pruritus [Unknown]
